FAERS Safety Report 9039681 (Version 1)
Quarter: 2013Q1

REPORT INFORMATION
  Report Type: Report from Study
  Country: US (occurrence: US)
  Receive Date: 20130129
  Receipt Date: 20130129
  Transmission Date: 20140127
  Serious: No
  Sender: FDA-Public Use
  Company Number: US-ABBOTT-12P-163-0944344-00

PATIENT
  Age: 54 Year
  Sex: Male

DRUGS (16)
  1. HUMIRA 40 MG/0.8 ML PEN [Suspect]
     Indication: PSORIASIS
     Dates: start: 20120329
  2. MULTIVITAMIN [Concomitant]
     Indication: PRODUCT USED FOR UNKNOWN INDICATION
     Dosage: EVERY DAY
  3. FISH OIL [Concomitant]
     Indication: VITAMIN SUPPLEMENTATION
  4. FLAX SEED OIL [Concomitant]
     Indication: VITAMIN SUPPLEMENTATION
  5. CALCIUM WITH VITAMIN D [Concomitant]
     Indication: VITAMIN SUPPLEMENTATION
  6. CALCIUM WITH VITAMIN D [Concomitant]
     Indication: VITAMIN SUPPLEMENTATION
  7. VITAMIN B12 [Concomitant]
     Indication: VITAMIN SUPPLEMENTATION
  8. VITAMIN B12 [Concomitant]
  9. VITAMIN B12 [Concomitant]
  10. MAGNESIUM [Concomitant]
     Indication: MINERAL SUPPLEMENTATION
  11. VITAMIN E [Concomitant]
     Indication: VITAMIN SUPPLEMENTATION
     Dosage: EVERY OTHER DAY
  12. LISINOPRIL [Concomitant]
     Indication: BLOOD PRESSURE
     Dosage: 10MG DAILY
  13. ATENOLOL [Concomitant]
     Indication: BLOOD PRESSURE
  14. ASPIRIN [Concomitant]
     Indication: PRODUCT USED FOR UNKNOWN INDICATION
     Dosage: 81MG DAILY
  15. METANX [Concomitant]
     Indication: PRODUCT USED FOR UNKNOWN INDICATION
     Dosage: ONE PER DAY
  16. OMEPRAZOLE [Concomitant]
     Indication: DYSPEPSIA
     Dosage: ONCE PER DAY AFTER DINNER

REACTIONS (4)
  - Weight increased [Not Recovered/Not Resolved]
  - Rhinorrhoea [Not Recovered/Not Resolved]
  - Fatigue [Not Recovered/Not Resolved]
  - Body temperature decreased [Not Recovered/Not Resolved]
